FAERS Safety Report 8713454 (Version 2)
Quarter: 2012Q4

REPORT INFORMATION
  Report Type: 
  Country: JP (occurrence: JP)
  Receive Date: 20120808
  Receipt Date: 20121004
  Transmission Date: 20130627
  Serious: Yes (Other)
  Sender: FDA-Public Use
  Company Number: PHHY2011JP113152

PATIENT
  Sex: Male

DRUGS (2)
  1. EXELON PATCH [Suspect]
     Indication: DEMENTIA
     Route: 062
     Dates: start: 201111, end: 20111228
  2. ZYLORIC [Suspect]
     Dosage: 100 mg, daily
     Route: 048

REACTIONS (4)
  - Eosinophil count increased [Unknown]
  - Renal failure chronic [Not Recovered/Not Resolved]
  - Rash [Recovering/Resolving]
  - Pruritus [Unknown]
